FAERS Safety Report 9878128 (Version 1)
Quarter: 2014Q1

REPORT INFORMATION
  Report Type: Spontaneous
  Country: US (occurrence: US)
  Receive Date: 20140206
  Receipt Date: 20140206
  Transmission Date: 20141002
  Serious: Yes (Other)
  Sender: FDA-Public Use
  Company Number: US-PFIZER INC-2014032392

PATIENT
  Age: 58 Year
  Sex: Female
  Weight: 76.64 kg

DRUGS (6)
  1. PREMARIN [Suspect]
     Indication: MENOPAUSAL SYMPTOMS
     Dosage: 0.625 MG, 1X/DAY
     Route: 048
     Dates: end: 20140101
  2. CITALOPRAM [Concomitant]
     Dosage: UNK
  3. HYDROCHLOROTHIAZIDE WITH TRIAMTERENE [Concomitant]
     Dosage: UNK
  4. LEVOTHYROXINE [Concomitant]
     Dosage: UNK
  5. CELEBREX [Concomitant]
     Dosage: UNK
  6. LYRICA [Concomitant]
     Dosage: UNK

REACTIONS (9)
  - Breast mass [Unknown]
  - Arthropathy [Unknown]
  - Heart rate increased [Unknown]
  - Malaise [Unknown]
  - Feeling of body temperature change [Unknown]
  - Dizziness [Not Recovered/Not Resolved]
  - Tremor [Not Recovered/Not Resolved]
  - Alopecia [Not Recovered/Not Resolved]
  - Palpitations [Not Recovered/Not Resolved]
